FAERS Safety Report 9342906 (Version 1)
Quarter: 2013Q2

REPORT INFORMATION
  Report Type: Spontaneous
  Country: CN (occurrence: CN)
  Receive Date: 20130611
  Receipt Date: 20130611
  Transmission Date: 20140414
  Serious: Yes (Congenital Anomaly)
  Sender: FDA-Public Use
  Company Number: CN-GLAXOSMITHKLINE-B0898508A

PATIENT
  Sex: 0

DRUGS (1)
  1. LAMICTAL [Suspect]
     Indication: EPILEPSY
     Dosage: 125MG PER DAY
     Route: 015
     Dates: start: 20110101, end: 20121221

REACTIONS (1)
  - Ventricular septal defect [Unknown]
